FAERS Safety Report 16353082 (Version 1)
Quarter: 2019Q2

REPORT INFORMATION
  Report Type: Spontaneous
  Country: US (occurrence: US)
  Receive Date: 20190418
  Receipt Date: 20190418
  Transmission Date: 20190711
  Serious: Yes (Hospitalization)
  Sender: FDA-Public Use
  Company Number: None

PATIENT
  Age: 69 Year
  Sex: Male
  Weight: 86.18 kg

DRUGS (1)
  1. ZOLPIDEM [Suspect]
     Active Substance: ZOLPIDEM\ZOLPIDEM TARTRATE
     Indication: INSOMNIA
     Dosage: ?          QUANTITY:1 PILL;?
     Route: 048
     Dates: start: 20180112, end: 20180307

REACTIONS (4)
  - Decreased appetite [None]
  - Lethargy [None]
  - Blood pressure increased [None]
  - Anxiety [None]

NARRATIVE: CASE EVENT DATE: 20190309
